FAERS Safety Report 26207277 (Version 1)
Quarter: 2025Q4

REPORT INFORMATION
  Report Type: Spontaneous
  Country: US (occurrence: US)
  Receive Date: 20251229
  Receipt Date: 20251229
  Transmission Date: 20260117
  Serious: Yes (Other)
  Sender: QILU PHARMACEUTICAL
  Company Number: US-QILU PHARMACEUTICAL CO.LTD.-QLU-000339-2025

PATIENT
  Age: 65 Year
  Sex: Female

DRUGS (38)
  1. OLANZAPINE [Suspect]
     Active Substance: OLANZAPINE
     Indication: Paranoia
     Dosage: 20 MG DAILY
     Route: 065
  2. OLANZAPINE [Suspect]
     Active Substance: OLANZAPINE
     Indication: Insomnia
     Dosage: 10 MG DAILY
     Route: 065
  3. OLANZAPINE [Suspect]
     Active Substance: OLANZAPINE
     Indication: Hypersexuality
     Dosage: 5 MG DAILY
     Route: 065
  4. OLANZAPINE [Suspect]
     Active Substance: OLANZAPINE
     Indication: Compulsions
  5. OLANZAPINE [Suspect]
     Active Substance: OLANZAPINE
     Indication: Aggression
  6. OLANZAPINE [Suspect]
     Active Substance: OLANZAPINE
     Indication: Restlessness
  7. OLANZAPINE [Suspect]
     Active Substance: OLANZAPINE
     Indication: Anxiety
  8. TRAZODONE [Concomitant]
     Active Substance: TRAZODONE HYDROCHLORIDE
     Indication: Paranoia
     Dosage: 50 MG AT BEDTIME
     Route: 065
  9. TRAZODONE [Concomitant]
     Active Substance: TRAZODONE HYDROCHLORIDE
     Indication: Insomnia
     Dosage: 12.5 TO 25 MG THREE TIMES DAILY AS NEEDED
     Route: 065
  10. TRAZODONE [Concomitant]
     Active Substance: TRAZODONE HYDROCHLORIDE
     Indication: Hypersexuality
  11. TRAZODONE [Concomitant]
     Active Substance: TRAZODONE HYDROCHLORIDE
  12. TRAZODONE [Concomitant]
     Active Substance: TRAZODONE HYDROCHLORIDE
     Indication: Aggression
  13. TRAZODONE [Concomitant]
     Active Substance: TRAZODONE HYDROCHLORIDE
     Indication: Restlessness
  14. TRAZODONE [Concomitant]
     Active Substance: TRAZODONE HYDROCHLORIDE
     Indication: Anxiety
  15. FLUOXETINE [Concomitant]
     Active Substance: FLUOXETINE HYDROCHLORIDE
     Indication: Paranoia
     Dosage: UNK
     Route: 048
  16. FLUOXETINE [Concomitant]
     Active Substance: FLUOXETINE HYDROCHLORIDE
     Indication: Insomnia
  17. FLUOXETINE [Concomitant]
     Active Substance: FLUOXETINE HYDROCHLORIDE
     Indication: Hypersexuality
  18. FLUOXETINE [Concomitant]
     Active Substance: FLUOXETINE HYDROCHLORIDE
  19. FLUOXETINE [Concomitant]
     Active Substance: FLUOXETINE HYDROCHLORIDE
     Indication: Aggression
  20. FLUOXETINE [Concomitant]
     Active Substance: FLUOXETINE HYDROCHLORIDE
     Indication: Restlessness
  21. QUETIAPINE [Concomitant]
     Active Substance: QUETIAPINE
     Indication: Paranoia
     Dosage: UNK
     Route: 065
  22. QUETIAPINE [Concomitant]
     Active Substance: QUETIAPINE
     Indication: Insomnia
  23. QUETIAPINE [Concomitant]
     Active Substance: QUETIAPINE
     Indication: Hypersexuality
  24. QUETIAPINE [Concomitant]
     Active Substance: QUETIAPINE
  25. QUETIAPINE [Concomitant]
     Active Substance: QUETIAPINE
     Indication: Aggression
  26. QUETIAPINE [Concomitant]
     Active Substance: QUETIAPINE
     Indication: Restlessness
  27. MIRTAZAPINE [Concomitant]
     Active Substance: MIRTAZAPINE
     Indication: Restlessness
     Dosage: UNK
     Route: 065
  28. MIRTAZAPINE [Concomitant]
     Active Substance: MIRTAZAPINE
     Indication: Paranoia
  29. MIRTAZAPINE [Concomitant]
     Active Substance: MIRTAZAPINE
     Indication: Insomnia
  30. MIRTAZAPINE [Concomitant]
     Active Substance: MIRTAZAPINE
     Indication: Hypersexuality
  31. MIRTAZAPINE [Concomitant]
     Active Substance: MIRTAZAPINE
  32. MIRTAZAPINE [Concomitant]
     Active Substance: MIRTAZAPINE
     Indication: Aggression
  33. PHENOBARBITAL [Concomitant]
     Active Substance: PHENOBARBITAL
     Indication: Paranoia
     Dosage: 30 MG EVERY 12 HOURS
     Route: 048
  34. PHENOBARBITAL [Concomitant]
     Active Substance: PHENOBARBITAL
     Indication: Restlessness
  35. PHENOBARBITAL [Concomitant]
     Active Substance: PHENOBARBITAL
     Indication: Insomnia
  36. PHENOBARBITAL [Concomitant]
     Active Substance: PHENOBARBITAL
     Indication: Hypersexuality
  37. PHENOBARBITAL [Concomitant]
     Active Substance: PHENOBARBITAL
  38. PHENOBARBITAL [Concomitant]
     Active Substance: PHENOBARBITAL
     Indication: Aggression

REACTIONS (2)
  - Delirium [Unknown]
  - Drug ineffective for unapproved indication [Unknown]
